FAERS Safety Report 21795936 (Version 2)
Quarter: 2023Q1

REPORT INFORMATION
  Report Type: Spontaneous
  Country: FR (occurrence: FR)
  Receive Date: 20221229
  Receipt Date: 20230111
  Transmission Date: 20230418
  Serious: Yes (Hospitalization)
  Sender: FDA-Public Use
  Company Number: FR-TEVA-2022-FR-2840380

PATIENT
  Age: 41 Year
  Sex: Male

DRUGS (3)
  1. METHOTREXATE [Suspect]
     Active Substance: METHOTREXATE
     Indication: Pulmonary sarcoidosis
     Route: 065
  2. IMIPENEM [Suspect]
     Active Substance: IMIPENEM
     Indication: Pneumonia klebsiella
     Route: 065
  3. LEUCOVORIN [Concomitant]
     Active Substance: LEUCOVORIN
     Indication: Pulmonary sarcoidosis
     Dosage: .4 MILLIGRAM DAILY;
     Route: 065

REACTIONS (4)
  - COVID-19 [Recovering/Resolving]
  - H1N1 influenza [Recovering/Resolving]
  - Treatment failure [Unknown]
  - Interstitial lung disease [Recovering/Resolving]
